FAERS Safety Report 10381957 (Version 1)
Quarter: 2014Q1

REPORT INFORMATION
  Report Type: Spontaneous
  Country: US (occurrence: None)
  Receive Date: 20140306
  Receipt Date: 20140306
  Transmission Date: 20141002
  Serious: Yes (Other)
  Sender: FDA-Public Use
  Company Number: 163-21880-13103070

PATIENT
  Age: 61 Year
  Sex: Male
  Weight: 73.94 kg

DRUGS (1)
  1. REVLIMID [Suspect]
     Indication: MANTLE CELL LYMPHOMA
     Dosage: 25 MG, 21 IN 28 D
     Route: 048
     Dates: start: 20130804

REACTIONS (4)
  - Incoherent [None]
  - Rash [None]
  - Dizziness [None]
  - Headache [None]
